FAERS Safety Report 5833089-3 (Version None)
Quarter: 2008Q3

REPORT INFORMATION
  Report Type: 
  Country: None (occurrence: None)
  Receive Date: 20080805
  Receipt Date: 20080731
  Transmission Date: 20090109
  Serious: Yes (Death, Other)
  Sender: FDA-Public Use
  Company Number: US-ASTRAZENECA-2008UW10873

PATIENT
  Age: 58 Year
  Sex: Male
  Weight: 76 kg

DRUGS (7)
  1. MERREM [Suspect]
     Indication: PNEUMONIA
     Route: 042
     Dates: start: 20080523, end: 20080530
  2. MERREM [Suspect]
     Indication: SEPSIS
     Route: 042
     Dates: start: 20080523, end: 20080530
  3. LINEZOLID [Concomitant]
     Indication: PNEUMONIA
     Route: 042
     Dates: start: 20080526, end: 20080528
  4. LEVOFLOXACIN [Concomitant]
     Indication: SEPSIS
     Dates: start: 20080526, end: 20080528
  5. LEVOFLOXACIN [Concomitant]
     Indication: PNEUMONIA
     Dates: start: 20080526, end: 20080528
  6. VANCOMYCIN HCL [Concomitant]
     Indication: SEPSIS
     Route: 042
     Dates: start: 20080524, end: 20080526
  7. VANCOMYCIN HCL [Concomitant]
     Indication: PNEUMONIA
     Route: 042
     Dates: start: 20080524, end: 20080526

REACTIONS (2)
  - COMPLEX PARTIAL SEIZURES [None]
  - DEATH [None]
